FAERS Safety Report 9288039 (Version 1)
Quarter: 2012Q4

REPORT INFORMATION
  Report Type: Spontaneous
  Country: US (occurrence: None)
  Receive Date: 20120927
  Receipt Date: 20120927
  Transmission Date: 20130627
  Serious: Yes (Hospitalization, Other)
  Sender: FDA-Public Use
  Company Number: 2011MA015566

PATIENT
  Sex: Female
  Weight: 69.85 kg

DRUGS (8)
  1. METOCLOPRAMIDE TABLETS USP, 10 MG (PUREPAC) [Suspect]
     Indication: ACID REFLUX
     Dates: start: 201003, end: 201008
  2. METOCLOPRAMIDE TABLETS USP, 10 MG (PUREPAC) [Suspect]
     Indication: NAUSEA
     Dates: start: 201003, end: 201008
  3. METOCLOPRAMIDE TABLETS USP, 10 MG (PUREPAC) [Suspect]
     Indication: VOMITING
     Dates: start: 201003, end: 201008
  4. ASPIRINE [Concomitant]
  5. CARAFATE [Concomitant]
  6. ENOXAPARIN [Concomitant]
  7. LACTULOSE [Concomitant]
  8. PANTOPRAZOLE [Concomitant]

REACTIONS (15)
  - Dystonia [None]
  - Emotional disorder [None]
  - Injury [None]
  - Chest pain [None]
  - Asthenia [None]
  - Dizziness [None]
  - Nausea [None]
  - Vomiting [None]
  - Hyperhidrosis [None]
  - Abdominal pain upper [None]
  - Heart rate abnormal [None]
  - Palpitations [None]
  - Constipation [None]
  - Hypovolaemia [None]
  - Anaemia [None]
